FAERS Safety Report 16534796 (Version 4)
Quarter: 2019Q4

REPORT INFORMATION
  Report Type: Report from Study
  Country: JP (occurrence: JP)
  Receive Date: 20190705
  Receipt Date: 20191218
  Transmission Date: 20200122
  Serious: Yes (Hospitalization, Other)
  Sender: FDA-Public Use
  Company Number: JP-GILEAD-2019-0416919

PATIENT
  Age: 70 Year
  Sex: Male
  Weight: 67 kg

DRUGS (14)
  1. AZULENE                            /00317303/ [Concomitant]
     Indication: PRODUCT USED FOR UNKNOWN INDICATION
     Dosage: OPTIMAL DOSE, AS NEEDED
     Route: 048
     Dates: start: 20190525
  2. ENTECAVIR. [Concomitant]
     Active Substance: ENTECAVIR
     Indication: HEPATITIS B
     Dosage: 0.5 MG, QD
     Route: 048
     Dates: start: 201810
  3. DOMPERIDONE [Concomitant]
     Active Substance: DOMPERIDONE
     Indication: NAUSEA
     Dosage: 10 MG, AS NEEDED
     Route: 048
     Dates: start: 20190622
  4. CYCLOPHOSPHAMIDE. [Suspect]
     Active Substance: CYCLOPHOSPHAMIDE
     Indication: BONE MARROW CONDITIONING REGIMEN
     Dosage: 520 MG
     Route: 041
     Dates: start: 20190619, end: 20190621
  5. AMLODIPINE [Concomitant]
     Active Substance: AMLODIPINE BESYLATE
     Indication: HYPERTENSION
     Dosage: 2.5 MG, QD
     Route: 048
     Dates: start: 201810
  6. ANTEBATE [Concomitant]
     Active Substance: BETAMETHASONE DIPROPIONATE
     Indication: DERMATITIS ATOPIC
     Dosage: OPTIMAL DOSE
     Route: 065
     Dates: start: 2010
  7. PRIMPERAN [Concomitant]
     Active Substance: METOCLOPRAMIDE HYDROCHLORIDE
     Indication: NAUSEA
     Dosage: 10 MG, AS NEEDED
     Route: 042
     Dates: start: 20190621
  8. AXICABTAGENE CILOLEUCEL [Suspect]
     Active Substance: AXICABTAGENE CILOLEUCEL
     Indication: DIFFUSE LARGE B-CELL LYMPHOMA
     Dosage: UNK
     Route: 042
     Dates: start: 20190624, end: 20190624
  9. LOCOID [Concomitant]
     Active Substance: HYDROCORTISONE BUTYRATE
     Indication: DERMATITIS ATOPIC
     Dosage: OPTIMAL DOSE
     Route: 065
     Dates: start: 2010
  10. FLUDARABINE [FLUDARABINE PHOSPHATE] [Suspect]
     Active Substance: FLUDARABINE PHOSPHATE
     Indication: BONE MARROW CONDITIONING REGIMEN
     Dosage: 51 MG
     Route: 041
     Dates: start: 20190619, end: 20190621
  11. BESOFTEN [Concomitant]
     Active Substance: PENTOSAN POLYSULFATE SODIUM
     Indication: DERMATITIS ATOPIC
     Dosage: OPTIMAL DOSE
     Route: 065
     Dates: start: 2010
  12. METOCLOPRAMIDE. [Concomitant]
     Active Substance: METOCLOPRAMIDE
     Indication: NAUSEA
     Dosage: 5 MG, AS NEEDED
     Route: 048
     Dates: start: 20190622
  13. NEXIUM [Concomitant]
     Active Substance: ESOMEPRAZOLE MAGNESIUM
     Indication: PEPTIC ULCER
     Dosage: 20 MG, QD
     Route: 048
     Dates: start: 20190622
  14. SP [DEQUALINIUM CHLORIDE] [Concomitant]
     Indication: PRODUCT USED FOR UNKNOWN INDICATION
     Dosage: 1 DF, AS NEEDED
     Route: 048
     Dates: start: 20190525

REACTIONS (2)
  - Hepatic function abnormal [Recovered/Resolved]
  - Cytokine release syndrome [Recovered/Resolved]

NARRATIVE: CASE EVENT DATE: 20190627
